FAERS Safety Report 6404644-7 (Version None)
Quarter: 2009Q4

REPORT INFORMATION
  Report Type: 
  Country: None (occurrence: None)
  Receive Date: 20091016
  Receipt Date: 20091006
  Transmission Date: 20100525
  Serious: Yes (Death, Hospitalization, Other)
  Sender: FDA-Public Use
  Company Number: US-ELI_LILLY_AND_COMPANY-US200909000497

PATIENT
  Age: 76 Year
  Sex: Female

DRUGS (4)
  1. ZYPREXA [Suspect]
     Indication: BIPOLAR I DISORDER
     Dosage: 7.5 MG, DAILY (1/D)
     Dates: start: 20071010
  2. PROZAC [Suspect]
     Indication: BIPOLAR I DISORDER
     Dates: start: 20071010
  3. BENZTROPINE MESYLATE [Concomitant]
     Dosage: 1.5 MG, 2/D
  4. DEPAKOTE ER [Concomitant]
     Dosage: 500 MG, DAILY (1/D)

REACTIONS (3)
  - CLOSTRIDIAL INFECTION [None]
  - HYPONATRAEMIA [None]
  - URINARY TRACT INFECTION [None]
